FAERS Safety Report 7748903-4 (Version None)
Quarter: 2011Q3

REPORT INFORMATION
  Report Type: 
  Country: None (occurrence: None)
  Receive Date: 20110909
  Receipt Date: 20110902
  Transmission Date: 20111222
  Serious: Yes (Other)
  Sender: FDA-Public Use
  Company Number: 2011SP041727

PATIENT
  Age: 69 Year
  Sex: Male

DRUGS (1)
  1. BOCEPREVIR (SCH-503034) [Suspect]
     Indication: PRODUCT USED FOR UNKNOWN INDICATION

REACTIONS (4)
  - RETINAL EXUDATES [None]
  - RETINAL VASCULAR DISORDER [None]
  - EYE HAEMORRHAGE [None]
  - PAPILLOEDEMA [None]
